FAERS Safety Report 10379087 (Version 1)
Quarter: 2014Q3

REPORT INFORMATION
  Report Type: Spontaneous
  Country: US (occurrence: None)
  Receive Date: 20140811
  Receipt Date: 20140811
  Transmission Date: 20150326
  Serious: Yes (Disabling)
  Sender: FDA-Public Use
  Company Number: None

PATIENT
  Age: 38 Year
  Sex: Male
  Weight: 111.13 kg

DRUGS (1)
  1. ORPHENADRINE [Suspect]
     Active Substance: ORPHENADRINE
     Indication: BACK PAIN
     Dosage: 1 PILL ONCE DAILY TAKEN BY MOUTH
     Route: 048
     Dates: start: 20140806, end: 20140809

REACTIONS (2)
  - Skin disorder [None]
  - Product substitution issue [None]

NARRATIVE: CASE EVENT DATE: 20140806
